FAERS Safety Report 18227675 (Version 4)
Quarter: 2024Q4

REPORT INFORMATION
  Report Type: Report from Study
  Country: IT (occurrence: IT)
  Receive Date: 20200903
  Receipt Date: 20241121
  Transmission Date: 20250115
  Serious: Yes (Hospitalization, Other)
  Sender: GLAXOSMITHKLINE
  Company Number: None

PATIENT
  Age: 93 Year
  Sex: Male

DRUGS (9)
  1. DUTASTERIDE [Suspect]
     Active Substance: DUTASTERIDE
     Indication: Drug abuse
     Dosage: 7.5 MG, SINGLE(TOTAL)
     Route: 065
     Dates: start: 20200707, end: 20200707
  2. PANTOPRAZOLE [Suspect]
     Active Substance: PANTOPRAZOLE
     Indication: Drug abuse
     Dosage: 2 DF, SINGLE (TOTAL)
     Route: 065
     Dates: start: 20200707, end: 20200707
  3. OXYBUTYNIN CHLORIDE [Suspect]
     Active Substance: OXYBUTYNIN CHLORIDE
     Indication: Drug abuse
     Dosage: 45 MG, SINGLE (TOTAL)
     Route: 048
     Dates: start: 20200707, end: 20200707
  4. OXYBUTYNIN CHLORIDE [Suspect]
     Active Substance: OXYBUTYNIN CHLORIDE
     Dosage: 45 MG, SINGLE (TOTAL)
     Route: 048
     Dates: start: 20200707, end: 20200707
  5. XARELTO [Suspect]
     Active Substance: RIVAROXABAN
     Indication: Drug abuse
     Dosage: 45 MG, SINGLE (TOTAL)
     Route: 065
     Dates: start: 20200707, end: 20200707
  6. ALFUZOSIN HYDROCHLORIDE [Suspect]
     Active Substance: ALFUZOSIN HYDROCHLORIDE
     Indication: Drug abuse
     Dosage: 60 MG, SINGLE(TOTAL)
     Route: 048
     Dates: start: 20200707, end: 20200707
  7. LEUCOVORIN CALCIUM [Suspect]
     Active Substance: LEUCOVORIN CALCIUM
     Indication: Product used for unknown indication
     Dosage: 45 MG; TOTAL
     Route: 065
     Dates: start: 20200707, end: 20200707
  8. LASIX [Suspect]
     Active Substance: FUROSEMIDE
     Indication: Product used for unknown indication
     Dosage: 50 MG TOTAL
     Route: 065
     Dates: start: 20200707, end: 20200707
  9. LEVOSULPIRIDE [Suspect]
     Active Substance: LEVOSULPIRIDE
     Indication: Product used for unknown indication
     Dosage: 50 MG (TOTAL)
     Route: 065
     Dates: start: 20200707, end: 20200707

REACTIONS (3)
  - Disorganised speech [Not Recovered/Not Resolved]
  - Drug abuse [Unknown]
  - Intentional overdose [Unknown]

NARRATIVE: CASE EVENT DATE: 20200707
